FAERS Safety Report 14530123 (Version 2)
Quarter: 2018Q1

REPORT INFORMATION
  Report Type: Spontaneous
  Country: US (occurrence: US)
  Receive Date: 20180214
  Receipt Date: 20180321
  Transmission Date: 20180509
  Serious: Yes (Other)
  Sender: FDA-Public Use
  Company Number: US-PFIZER INC-2018061966

PATIENT
  Age: 58 Year
  Sex: Female

DRUGS (2)
  1. METHOTREXATE SODIUM. [Suspect]
     Active Substance: METHOTREXATE SODIUM
     Indication: PALINDROMIC RHEUMATISM
     Dosage: 20 MG, WEEKLY (8 TABS WEEKLY)
     Route: 048
  2. METHOTREXATE SODIUM. [Suspect]
     Active Substance: METHOTREXATE SODIUM
     Indication: PALINDROMIC RHEUMATISM
     Dosage: 0.8 ML, WEEKLY
     Route: 058

REACTIONS (6)
  - Product use issue [Unknown]
  - Drug effect incomplete [Unknown]
  - Condition aggravated [Unknown]
  - Rheumatoid arthritis [Unknown]
  - Intentional product misuse [Unknown]
  - Drug intolerance [Unknown]
